FAERS Safety Report 7522796-2 (Version None)
Quarter: 2011Q2

REPORT INFORMATION
  Report Type: 
  Country: None (occurrence: None)
  Receive Date: 20110603
  Receipt Date: 20110601
  Transmission Date: 20111010
  Serious: Yes (Other)
  Sender: FDA-Public Use
  Company Number: US-PFIZER INC-2011119876

PATIENT
  Sex: Female

DRUGS (2)
  1. LIPITOR [Suspect]
     Indication: BLOOD CHOLESTEROL
     Dosage: 20 MG, 1X/DAY
  2. LIPITOR [Suspect]
     Dosage: 40 MG, 1X/DAY

REACTIONS (3)
  - MUSCLE DISORDER [None]
  - BONE PAIN [None]
  - LIGAMENT RUPTURE [None]
